FAERS Safety Report 15942592 (Version 2)
Quarter: 2020Q1

REPORT INFORMATION
  Report Type: Spontaneous
  Country: FR (occurrence: FR)
  Receive Date: 20190210
  Receipt Date: 20200210
  Transmission Date: 20200409
  Serious: Yes (Hospitalization, Other)
  Sender: FDA-Public Use
  Company Number: PHHY2019FR027634

PATIENT
  Sex: Male
  Weight: 60 kg

DRUGS (3)
  1. AUGMENTIN [Concomitant]
     Active Substance: AMOXICILLIN\CLAVULANATE POTASSIUM
     Indication: ANTIBIOTIC THERAPY
     Dosage: 1000 MG, Q8H
     Route: 048
     Dates: start: 20180426, end: 20180502
  2. TACROLIMUS. [Suspect]
     Active Substance: TACROLIMUS
     Dosage: 14 MG, QD
     Route: 048
     Dates: start: 20180426, end: 20180430
  3. TACROLIMUS. [Suspect]
     Active Substance: TACROLIMUS
     Indication: IMMUNOSUPPRESSION
     Dosage: 14 MG, QD
     Route: 048
     Dates: start: 20180122

REACTIONS (3)
  - Pericarditis uraemic [Recovered/Resolved]
  - Medication error [Unknown]
  - End stage renal disease [Recovered/Resolved]

NARRATIVE: CASE EVENT DATE: 20180426
